FAERS Safety Report 5096570-3 (Version None)
Quarter: 2006Q3

REPORT INFORMATION
  Report Type: 
  Country: None (occurrence: None)
  Receive Date: 20060830
  Receipt Date: 20060818
  Transmission Date: 20061208
  Serious: Yes (Other)
  Sender: FDA-Public Use
  Company Number: 2006100733

PATIENT
  Age: 70 Year
  Sex: Female
  Weight: 67 kg

DRUGS (3)
  1. AROMASIN [Suspect]
     Indication: BREAST CANCER
     Dosage: 25 MG (25 MG, 1 IN 1 D) ORAL
     Route: 048
     Dates: start: 20050202
  2. METOPROLOL SUCCINATE [Concomitant]
  3. RAMIPRIL [Concomitant]

REACTIONS (1)
  - CORONARY ARTERY STENOSIS [None]
